FAERS Safety Report 9655121 (Version 2)
Quarter: 2013Q4

REPORT INFORMATION
  Report Type: Spontaneous
  Country: US (occurrence: US)
  Receive Date: 20131029
  Receipt Date: 20131029
  Transmission Date: 20140711
  Serious: No
  Sender: FDA-Public Use
  Company Number: US-PURDUE-USA-2012-0093661

PATIENT
  Sex: Female

DRUGS (10)
  1. OXYCONTIN (NDA 22-272) [Suspect]
     Indication: PAIN
     Dosage: 40 MG, TID
     Route: 048
  2. OXYCONTIN (NDA 22-272) [Suspect]
     Dosage: 60 MG, TID
     Route: 048
     Dates: start: 20120913
  3. DILAUDID TABLET [Concomitant]
     Indication: BREAKTHROUGH PAIN
     Dosage: 4 MG, TID
     Route: 048
     Dates: start: 2009
  4. KEPPRA [Concomitant]
     Indication: EPILEPSY
     Dosage: 750 MG, BID
     Route: 048
  5. METFORMIN [Concomitant]
     Indication: DIABETES MELLITUS
     Dosage: 500 MG, DAILY
     Route: 048
  6. RANTIDINE [Concomitant]
     Indication: PRODUCT USED FOR UNKNOWN INDICATION
     Dosage: 150 MG, BID
     Route: 048
  7. PRAVASTATIN SODIUM [Concomitant]
     Indication: PRODUCT USED FOR UNKNOWN INDICATION
     Dosage: 40 MG, HS
     Route: 048
  8. LORAZEPAM [Concomitant]
     Indication: PRODUCT USED FOR UNKNOWN INDICATION
     Dosage: 2 MG, BID
     Route: 048
  9. GABAPENTIN [Concomitant]
     Indication: PRODUCT USED FOR UNKNOWN INDICATION
     Dosage: 600 MG, QID
     Route: 048
  10. BABY ASPIRIN [Concomitant]
     Indication: PRODUCT USED FOR UNKNOWN INDICATION
     Dosage: 1 TABLET, DAILY
     Route: 048

REACTIONS (4)
  - Pain [Unknown]
  - Wrong technique in drug usage process [Unknown]
  - Malaise [Unknown]
  - Drug effect decreased [Not Recovered/Not Resolved]
